FAERS Safety Report 12071279 (Version 3)
Quarter: 2016Q1

REPORT INFORMATION
  Report Type: Spontaneous
  Country: CO (occurrence: CO)
  Receive Date: 20160211
  Receipt Date: 20160228
  Transmission Date: 20160526
  Serious: Yes (Hospitalization)
  Sender: FDA-Public Use
  Company Number: CO-AMGEN-COLSP2016015475

PATIENT
  Age: 43 Year
  Sex: Female

DRUGS (1)
  1. ENBREL [Suspect]
     Active Substance: ETANERCEPT
     Indication: ANKYLOSING SPONDYLITIS
     Dosage: 50 MG, WEEKLY
     Route: 058
     Dates: start: 201511, end: 201601

REACTIONS (5)
  - Pain in extremity [Not Recovered/Not Resolved]
  - Drug ineffective [Unknown]
  - Arthralgia [Unknown]
  - Paralysis [Unknown]
  - Pain [Unknown]

NARRATIVE: CASE EVENT DATE: 201601
